FAERS Safety Report 6581918-0 (Version None)
Quarter: 2010Q1

REPORT INFORMATION
  Report Type: 
  Country: None (occurrence: None)
  Receive Date: 20100212
  Receipt Date: 20100212
  Transmission Date: 20100710
  Serious: Yes (Hospitalization)
  Sender: FDA-Public Use
  Company Number: None

PATIENT
  Age: 81 Year
  Sex: Male
  Weight: 120 kg

DRUGS (1)
  1. ATENOLOL [Suspect]
     Indication: CORONARY ARTERY DISEASE
     Dosage: 12.5 MG EVERY DAY PO
     Route: 048
     Dates: start: 20030801, end: 20090805

REACTIONS (3)
  - BRADYCARDIA [None]
  - DIZZINESS [None]
  - SYNCOPE [None]
